FAERS Safety Report 4304641-1 (Version None)
Quarter: 2004Q1

REPORT INFORMATION
  Report Type: 
  Country: None (occurrence: None)
  Receive Date: 20040226
  Receipt Date: 20031106
  Transmission Date: 20041129
  Serious: No
  Sender: FDA-Public Use
  Company Number: US-GLAXOSMITHKLINE-A0433299A

PATIENT
  Age: 41 Year
  Sex: Female

DRUGS (5)
  1. WELLBUTRIN [Suspect]
     Indication: DEPRESSION
     Dosage: 300MG PER DAY
     Route: 048
  2. PAXIL CR [Suspect]
     Dosage: 25MG PER DAY
  3. TOPROL-XL [Concomitant]
  4. MICARDIS [Concomitant]
  5. BENADRYL [Concomitant]

REACTIONS (3)
  - CONTUSION [None]
  - LIBIDO DECREASED [None]
  - URTICARIA [None]
